FAERS Safety Report 5974268-4 (Version None)
Quarter: 2008Q4

REPORT INFORMATION
  Report Type: 
  Country: None (occurrence: None)
  Receive Date: 20081128
  Receipt Date: 20081117
  Transmission Date: 20090506
  Serious: Yes (Hospitalization)
  Sender: FDA-Public Use
  Company Number: US024972

PATIENT
  Sex: Female

DRUGS (1)
  1. OTFC (ORAL TRANSMUCOSAL FENTANYL CITRATE) (GENERIC ACTIQ) [Suspect]
     Indication: FIBROMYALGIA
     Dosage: 1200 UG BUCCAL
     Route: 002
     Dates: end: 20080101

REACTIONS (1)
  - HOSPITALISATION [None]
